FAERS Safety Report 23136342 (Version 1)
Quarter: 2023Q4

REPORT INFORMATION
  Report Type: Spontaneous
  Country: US (occurrence: US)
  Receive Date: 20231102
  Receipt Date: 20231102
  Transmission Date: 20240110
  Serious: No
  Sender: FDA-Public Use
  Company Number: US-BRISTOL-MYERS SQUIBB COMPANY-2023-156461

PATIENT
  Age: 90 Year
  Sex: Male

DRUGS (1)
  1. OPDIVO [Suspect]
     Active Substance: NIVOLUMAB
     Indication: Pancreatic carcinoma
     Dosage: STRENGTH AND PRESENTATION OF THE AE : 2 X 240MG VIALS, 2 X 120MG VIALS

REACTIONS (2)
  - Feeling abnormal [Unknown]
  - Off label use [Unknown]
